FAERS Safety Report 14700904 (Version 1)
Quarter: 2018Q1

REPORT INFORMATION
  Report Type: Spontaneous
  Country: US (occurrence: US)
  Receive Date: 20180330
  Receipt Date: 20180330
  Transmission Date: 20180509
  Serious: No
  Sender: FDA-Public Use
  Company Number: US-SHIRE-US201810435

PATIENT
  Sex: Male
  Weight: 64.85 kg

DRUGS (1)
  1. XIIDRA [Suspect]
     Active Substance: LIFITEGRAST
     Indication: DRY EYE
     Dosage: 1 GTT, 2X/DAY:BID,RIGHT EYE
     Route: 047
     Dates: start: 201802, end: 20180311

REACTIONS (4)
  - Mydriasis [Not Recovered/Not Resolved]
  - Dysgeusia [Not Recovered/Not Resolved]
  - Instillation site reaction [Not Recovered/Not Resolved]
  - Vision blurred [Not Recovered/Not Resolved]
